FAERS Safety Report 10223382 (Version 1)
Quarter: 2014Q2

REPORT INFORMATION
  Report Type: Spontaneous
  Country: US (occurrence: None)
  Receive Date: 20140605
  Receipt Date: 20140605
  Transmission Date: 20141212
  Serious: Yes (Other)
  Sender: FDA-Public Use
  Company Number: US-015897

PATIENT
  Sex: Female

DRUGS (1)
  1. ENDOMETRIN [Suspect]
     Indication: PREGNANCY
     Dates: start: 20140320, end: 20140322

REACTIONS (5)
  - Abortion spontaneous [None]
  - Dyspnoea [None]
  - Menorrhagia [None]
  - Vaginal haemorrhage [None]
  - Exposure during pregnancy [None]
